FAERS Safety Report 6022940 (Version 24)
Quarter: 2013Q4

REPORT INFORMATION
  Report Type: Spontaneous
  Country: US (occurrence: US)
  Receive Date: 20060411
  Receipt Date: 20131126
  Transmission Date: 20140711
  Serious: Yes (Hospitalization, Other)
  Sender: FDA-Public Use
  Company Number: US-ROCHE-432363

PATIENT
  Age: 13 Year
  Sex: Female
  Weight: 52.2 kg

DRUGS (23)
  1. ACCUTANE [Suspect]
     Indication: ACNE CYSTIC
     Route: 048
     Dates: start: 19970113, end: 19970408
  2. ACCUTANE [Suspect]
     Dosage: ACCUTANE INCREASED TO 80MG EVERY THIRD DAY.
     Route: 048
     Dates: start: 19970408, end: 19970509
  3. ACCUTANE [Suspect]
     Route: 048
     Dates: start: 19970711, end: 19970810
  4. ACCUTANE [Suspect]
     Route: 048
     Dates: start: 19980223, end: 19980325
  5. ACCUTANE [Suspect]
     Route: 048
     Dates: start: 19980727, end: 19980923
  6. ACCUTANE [Suspect]
     Route: 048
     Dates: start: 20001211, end: 200102
  7. ACCUTANE [Suspect]
     Dosage: 05 FEBRUARY 2001: NOTED PATIENT IS ON ACCUTANE.
     Route: 048
  8. ACCUTANE [Suspect]
     Dosage: 40MG ONCE DAILY ALTERNATING WITH 80MG EVERY THIRD DAY.
     Route: 048
     Dates: start: 20030902, end: 20030930
  9. ACCUTANE [Suspect]
     Dosage: 40MG ONCE DAILY ALTERNATING WITH 80MG EVERY THIRD DAY.
     Route: 048
  10. CLARAVIS [Concomitant]
     Indication: PRODUCT USED FOR UNKNOWN INDICATION
     Route: 065
  11. SPECTAZOLE [Concomitant]
     Indication: CHEILITIS
     Route: 061
  12. DERMATOP [Concomitant]
     Indication: CHEILITIS
     Route: 065
  13. DECADRON [Concomitant]
     Indication: DRY EYE
     Route: 047
  14. ARISTOCORT A [Concomitant]
     Indication: ECZEMA
     Route: 061
  15. EMBELINE E [Concomitant]
     Indication: ECZEMA
     Dosage: APPLIED TO HANDS.
     Route: 061
  16. DIPROLENE [Concomitant]
     Indication: LIP DISORDER
     Dosage: APPLIED TO LIPS.
     Route: 061
  17. THERAMYCIN Z [Concomitant]
     Indication: FOLLICULITIS
     Route: 061
  18. TRIAZ [Concomitant]
     Dosage: DOSING REGIMEN REPORTED AS QHS.
     Route: 061
  19. CYCLOCORT [Concomitant]
     Indication: ASTEATOSIS
     Dosage: APPLIED TO FOREARMS.
     Route: 061
  20. CUTIVATE [Concomitant]
     Indication: ECZEMA
     Dosage: REPORTED INDICATION INCLUDED BOTH DRY LIPS AND ECZEMA.
     Route: 061
  21. WESTCORT [Concomitant]
     Indication: CHEILITIS
     Route: 061
  22. PREDNISONE [Concomitant]
     Dosage: DOSING REGIMEN REPORTED AS QOD.
     Route: 048
  23. HIBICLENS [Concomitant]
     Dosage: DOSING REGIMEN REPORTED AS QD TO UNDERARMS.
     Route: 061

REACTIONS (38)
  - Colitis ulcerative [Recovered/Resolved]
  - Vomiting [Recovering/Resolving]
  - Inflammatory bowel disease [Unknown]
  - Arthritis [Recovering/Resolving]
  - Depression [Unknown]
  - Suicidal ideation [Unknown]
  - Crohn^s disease [Unknown]
  - Peptic ulcer [Unknown]
  - Intestinal obstruction [Unknown]
  - Haemangioma [Recovered/Resolved]
  - Hypersensitivity vasculitis [Recovering/Resolving]
  - Onychomycosis [Unknown]
  - Nail disorder [Unknown]
  - Anxiety [Unknown]
  - Dyspepsia [Unknown]
  - Back pain [Unknown]
  - Lip dry [Unknown]
  - Eczema [Unknown]
  - Ocular hyperaemia [Recovering/Resolving]
  - Epistaxis [Unknown]
  - Dry eye [Unknown]
  - Cheilitis [Unknown]
  - Clostridium test [Unknown]
  - Pneumonia [Unknown]
  - Rib fracture [Unknown]
  - Pleurisy [Unknown]
  - Visual acuity reduced [Recovering/Resolving]
  - Colitis [Unknown]
  - Tremor [Unknown]
  - Folliculitis [Unknown]
  - Asteatosis [Unknown]
  - Viral pharyngitis [Unknown]
  - Bronchitis [Unknown]
  - Gastroenteritis viral [Recovering/Resolving]
  - Proctitis [Unknown]
  - Cheilitis [Unknown]
  - Arthralgia [Unknown]
  - Dry skin [Unknown]
